FAERS Safety Report 10850955 (Version 1)
Quarter: 2015Q1

REPORT INFORMATION
  Report Type: Spontaneous
  Country: US (occurrence: US)
  Receive Date: 20150222
  Receipt Date: 20150222
  Transmission Date: 20150721
  Serious: No
  Sender: FDA-Public Use
  Company Number: US-ALLERGAN-1400072US

PATIENT
  Sex: Female

DRUGS (5)
  1. BOTOX [Suspect]
     Active Substance: ONABOTULINUMTOXINA
     Indication: FACE LIFT
  2. JUVEDERM [Concomitant]
     Active Substance: HYALURONIC ACID
     Indication: SKIN WRINKLING
     Dosage: UNK, SINGLE
     Route: 023
     Dates: start: 20131106, end: 20131106
  3. BOTOX [Suspect]
     Active Substance: ONABOTULINUMTOXINA
     Indication: SKIN WRINKLING
  4. JUVEDERM [Concomitant]
     Active Substance: HYALURONIC ACID
     Indication: SKIN WRINKLING
  5. BOTOX [Suspect]
     Active Substance: ONABOTULINUMTOXINA
     Indication: SKIN WRINKLING
     Dosage: 28 UNITS, SINGLE
     Route: 030
     Dates: start: 20131106, end: 20131106

REACTIONS (2)
  - Drug ineffective [Unknown]
  - Off label use [Unknown]
